FAERS Safety Report 10579289 (Version 1)
Quarter: 2014Q4

REPORT INFORMATION
  Report Type: Spontaneous
  Country: FR (occurrence: FR)
  Receive Date: 20141112
  Receipt Date: 20141112
  Transmission Date: 20150529
  Serious: Yes (Other)
  Sender: FDA-Public Use
  Company Number: FR-BRISTOL-MYERS SQUIBB COMPANY-21568522

PATIENT
  Age: 81 Year
  Sex: Female

DRUGS (5)
  1. CORDARONE [Concomitant]
     Active Substance: AMIODARONE HYDROCHLORIDE
  2. ELIQUIS [Suspect]
     Active Substance: APIXABAN
     Indication: ATRIAL FIBRILLATION
     Dates: start: 20140619, end: 20140619
  3. TENORMIN [Concomitant]
     Active Substance: ATENOLOL
  4. COVERSYL [Concomitant]
     Active Substance: PERINDOPRIL
  5. LASILIX [Concomitant]
     Active Substance: FUROSEMIDE

REACTIONS (1)
  - Hepatocellular injury [Unknown]
